FAERS Safety Report 4304598-3 (Version None)
Quarter: 2004Q1

REPORT INFORMATION
  Report Type: 
  Country: None (occurrence: None)
  Receive Date: 20040225
  Receipt Date: 20040225
  Transmission Date: 20041129
  Serious: No
  Sender: FDA-Public Use
  Company Number: None

PATIENT
  Sex: Male
  Weight: 96.1626 kg

DRUGS (11)
  1. LIPITOR [Suspect]
     Indication: HYPERLIPIDAEMIA
     Dosage: 1 TAB QDAY ORAL
     Route: 048
  2. ATORVASTATIN CALCIUM [Concomitant]
  3. GLUCOTROL XL [Concomitant]
  4. GLIPIZIDE [Concomitant]
  5. PROLIXIN [Concomitant]
  6. ANATENSOL [Concomitant]
  7. DEPAKOTE [Concomitant]
  8. DIVALPROEX SODIUM [Concomitant]
  9. ATIVAN [Concomitant]
  10. LORAZEPAM [Concomitant]
  11. METFORMIN HCL [Concomitant]

REACTIONS (2)
  - BLOOD CREATINE PHOSPHOKINASE INCREASED [None]
  - MYALGIA [None]
